FAERS Safety Report 7476219-2 (Version None)
Quarter: 2011Q2

REPORT INFORMATION
  Report Type: 
  Country: None (occurrence: None)
  Receive Date: 20110512
  Receipt Date: 20110414
  Transmission Date: 20111010
  Serious: Yes (Other)
  Sender: FDA-Public Use
  Company Number: US-BAYER-2011-037265

PATIENT
  Age: 86 Year
  Sex: Female
  Weight: 71.655 kg

DRUGS (8)
  1. ASPIRIN [Suspect]
     Dosage: 1 DF, QD, BOTTLE COUNT 32S
     Route: 048
  2. FISH OIL [Concomitant]
     Dosage: UNK
  3. FLAX SEED OIL [Concomitant]
     Dosage: UNK
  4. DIOVAN HCT [Concomitant]
  5. MULTI-VITAMINS [Concomitant]
     Dosage: UNK
  6. ACETAMINOPHEN [Concomitant]
     Indication: ARTHRITIS
     Dosage: UNK
  7. B-COMPLEX [VITAMIN-B-KOMPLEX STANDARD] [Concomitant]
  8. CALCIUM W/MAGNESIUM [Concomitant]

REACTIONS (5)
  - DIZZINESS [None]
  - SWELLING FACE [None]
  - MOTION SICKNESS [None]
  - HEARING IMPAIRED [None]
  - TINNITUS [None]
